FAERS Safety Report 10133005 (Version 2)
Quarter: 2014Q2

REPORT INFORMATION
  Report Type: Spontaneous
  Country: JP (occurrence: JP)
  Receive Date: 20140428
  Receipt Date: 20140502
  Transmission Date: 20141212
  Serious: Yes (Other)
  Sender: FDA-Public Use
  Company Number: JP-OTSUKA-JP-2014-13404

PATIENT
  Sex: Male

DRUGS (4)
  1. SAMSCA [Suspect]
     Indication: CARDIAC FAILURE CHRONIC
     Dosage: 15 MG MILLIGRAM(S), DAILY DOSE
     Route: 048
  2. WARFARIN K [Suspect]
     Indication: PRODUCT USED FOR UNKNOWN INDICATION
     Dosage: UNK
     Route: 048
  3. HANP [Concomitant]
     Route: 041
  4. LASIX [Concomitant]
     Dosage: 30 MG MILLIGRAM(S), DAILY DOSE
     Route: 065

REACTIONS (3)
  - International normalised ratio increased [Recovered/Resolved]
  - Drug interaction [Recovered/Resolved]
  - Blood sodium decreased [Recovering/Resolving]
